FAERS Safety Report 25264568 (Version 1)
Quarter: 2025Q2

REPORT INFORMATION
  Report Type: Spontaneous
  Country: US (occurrence: US)
  Receive Date: 20250502
  Receipt Date: 20250502
  Transmission Date: 20250716
  Serious: No
  Sender: Haleon PLC
  Company Number: US-002147023-NVSC2023US120458

PATIENT
  Sex: Female
  Weight: 83.9 kg

DRUGS (46)
  1. FLUTICASONE [Suspect]
     Active Substance: FLUTICASONE
     Indication: Psoriasis
     Route: 065
  2. FLUTICASONE [Suspect]
     Active Substance: FLUTICASONE
     Indication: Psoriatic arthropathy
  3. TERBINAFINE [Suspect]
     Active Substance: TERBINAFINE
     Indication: Psoriatic arthropathy
     Route: 065
  4. TERBINAFINE [Suspect]
     Active Substance: TERBINAFINE
     Indication: Psoriasis
  5. ETONOGESTREL [Suspect]
     Active Substance: ETONOGESTREL
     Indication: Psoriasis
     Route: 065
  6. ETONOGESTREL [Suspect]
     Active Substance: ETONOGESTREL
     Indication: Psoriatic arthropathy
  7. FOLIC ACID [Suspect]
     Active Substance: FOLIC ACID
     Indication: Psoriatic arthropathy
     Route: 065
  8. FOLIC ACID [Suspect]
     Active Substance: FOLIC ACID
     Indication: Psoriasis
  9. PREDNISONE [Suspect]
     Active Substance: PREDNISONE
     Indication: Psoriasis
     Route: 065
  10. PREDNISONE [Suspect]
     Active Substance: PREDNISONE
     Indication: Psoriatic arthropathy
  11. ALBUTEROL SULFATE [Suspect]
     Active Substance: ALBUTEROL SULFATE
     Indication: Psoriatic arthropathy
     Route: 065
  12. ALBUTEROL SULFATE [Suspect]
     Active Substance: ALBUTEROL SULFATE
     Indication: Psoriasis
  13. TRETINOIN [Suspect]
     Active Substance: TRETINOIN
     Indication: Psoriatic arthropathy
     Route: 065
  14. TRETINOIN [Suspect]
     Active Substance: TRETINOIN
     Indication: Psoriasis
  15. BIOTIN [Suspect]
     Active Substance: BIOTIN
     Indication: Psoriatic arthropathy
     Route: 065
  16. BIOTIN [Suspect]
     Active Substance: BIOTIN
     Indication: Psoriasis
  17. METHOTREXATE [Suspect]
     Active Substance: METHOTREXATE
     Indication: Psoriatic arthropathy
     Route: 065
  18. METHOTREXATE [Suspect]
     Active Substance: METHOTREXATE
     Indication: Psoriasis
  19. FERROUS FUMARATE [Suspect]
     Active Substance: FERROUS FUMARATE
     Indication: Psoriasis
     Route: 065
  20. FERROUS FUMARATE [Suspect]
     Active Substance: FERROUS FUMARATE
     Indication: Psoriatic arthropathy
  21. CLOBETASOL [Suspect]
     Active Substance: CLOBETASOL
     Indication: Psoriasis
     Route: 065
  22. CLOBETASOL [Suspect]
     Active Substance: CLOBETASOL
     Indication: Psoriatic arthropathy
  23. FLUOCINOLONE ACETONIDE [Suspect]
     Active Substance: FLUOCINOLONE ACETONIDE
     Indication: Psoriasis
     Route: 065
  24. FLUOCINOLONE ACETONIDE [Suspect]
     Active Substance: FLUOCINOLONE ACETONIDE
     Indication: Psoriatic arthropathy
  25. AZELASTINE [Suspect]
     Active Substance: AZELASTINE
     Indication: Psoriatic arthropathy
     Route: 065
  26. AZELASTINE [Suspect]
     Active Substance: AZELASTINE
     Indication: Psoriasis
  27. SPIRONOLACTONE [Suspect]
     Active Substance: SPIRONOLACTONE
     Indication: Psoriasis
     Route: 065
  28. SPIRONOLACTONE [Suspect]
     Active Substance: SPIRONOLACTONE
     Indication: Psoriatic arthropathy
  29. COSENTYX [Suspect]
     Active Substance: SECUKINUMAB
     Indication: Psoriatic arthropathy
     Route: 050
  30. COSENTYX [Suspect]
     Active Substance: SECUKINUMAB
     Indication: Psoriasis
  31. MONTELUKAST [Suspect]
     Active Substance: MONTELUKAST
     Indication: Psoriasis
     Route: 065
  32. MONTELUKAST [Suspect]
     Active Substance: MONTELUKAST
     Indication: Psoriatic arthropathy
  33. ISOTRETINOIN [Suspect]
     Active Substance: ISOTRETINOIN
     Indication: Psoriatic arthropathy
     Route: 065
  34. ISOTRETINOIN [Suspect]
     Active Substance: ISOTRETINOIN
     Indication: Psoriasis
  35. KETOCONAZOLE [Suspect]
     Active Substance: KETOCONAZOLE
     Indication: Psoriatic arthropathy
     Route: 065
  36. KETOCONAZOLE [Suspect]
     Active Substance: KETOCONAZOLE
     Indication: Psoriasis
  37. ETHINYL ESTRADIOL\LEVONORGESTREL [Suspect]
     Active Substance: ETHINYL ESTRADIOL\LEVONORGESTREL
     Indication: Psoriatic arthropathy
     Route: 065
  38. ETHINYL ESTRADIOL\LEVONORGESTREL [Suspect]
     Active Substance: ETHINYL ESTRADIOL\LEVONORGESTREL
     Indication: Psoriasis
  39. SEMAGLUTIDE [Suspect]
     Active Substance: SEMAGLUTIDE
     Indication: Psoriatic arthropathy
     Route: 065
  40. SEMAGLUTIDE [Suspect]
     Active Substance: SEMAGLUTIDE
     Indication: Psoriasis
  41. ALBENDAZOLE [Suspect]
     Active Substance: ALBENDAZOLE
     Indication: Psoriasis
     Route: 065
  42. ALBENDAZOLE [Suspect]
     Active Substance: ALBENDAZOLE
     Indication: Psoriatic arthropathy
  43. MINOCYCLINE [Suspect]
     Active Substance: MINOCYCLINE HYDROCHLORIDE
     Indication: Psoriatic arthropathy
     Route: 065
  44. MINOCYCLINE [Suspect]
     Active Substance: MINOCYCLINE HYDROCHLORIDE
     Indication: Psoriasis
  45. BETAMETHASONE\CALCIPOTRIENE [Suspect]
     Active Substance: BETAMETHASONE\CALCIPOTRIENE
     Indication: Psoriatic arthropathy
     Route: 065
  46. BETAMETHASONE\CALCIPOTRIENE [Suspect]
     Active Substance: BETAMETHASONE\CALCIPOTRIENE
     Indication: Psoriasis

REACTIONS (21)
  - Xerosis [Recovering/Resolving]
  - Skin plaque [Unknown]
  - Arthralgia [Not Recovered/Not Resolved]
  - Dermatitis [Recovering/Resolving]
  - Skin exfoliation [Unknown]
  - Haemorrhoids [Unknown]
  - Body tinea [Unknown]
  - Genital pain [Not Recovered/Not Resolved]
  - Psoriasis [Unknown]
  - Papule [Unknown]
  - Erythema annulare [Unknown]
  - Therapeutic response decreased [Unknown]
  - Drug ineffective [Unknown]
  - Pruritus genital [Unknown]
  - Product use in unapproved indication [Unknown]
  - Anal pruritus [Unknown]
  - Proctalgia [Not Recovered/Not Resolved]
  - Skin burning sensation [Unknown]
  - Rash [Not Recovered/Not Resolved]
  - Acne [Recovering/Resolving]
  - Cheilitis [Recovering/Resolving]
